FAERS Safety Report 9587290 (Version 2)
Quarter: 2013Q4

REPORT INFORMATION
  Report Type: Report from Study
  Country: JP (occurrence: JP)
  Receive Date: 20131003
  Receipt Date: 20131230
  Transmission Date: 20140711
  Serious: Yes (Other)
  Sender: FDA-Public Use
  Company Number: JP-VERTEX PHARMACEUTICALS INC-2013-010153

PATIENT
  Age: 48 Year
  Sex: Male

DRUGS (9)
  1. VX-950 (TELAPREVIR) [Suspect]
     Indication: CHRONIC HEPATITIS C
     Dosage: 2250 MG, QD
     Route: 048
     Dates: start: 20120904, end: 20121126
  2. PEGINTRON [Suspect]
     Indication: CHRONIC HEPATITIS C
     Dosage: 1.37 ?G/KG, QW
     Route: 058
     Dates: start: 20120904
  3. REBETOL [Suspect]
     Indication: CHRONIC HEPATITIS C
     Dosage: 800 MG, QD
     Route: 048
     Dates: start: 20120904, end: 20121001
  4. REBETOL [Suspect]
     Dosage: 600 MG, QD
     Route: 048
     Dates: start: 20121002
  5. CLARITIN [Concomitant]
     Dosage: 10 MG, QD
     Route: 048
  6. FLUTIDE [Concomitant]
     Dosage: 200 RG, QD
     Route: 055
  7. MEPTIN AIR [Concomitant]
     Dosage: UNK, PRN
     Route: 055
  8. ZYLORIC [Concomitant]
     Dosage: 300 MG, QD
     Route: 048
     Dates: end: 20121203
  9. ONON [Concomitant]
     Dosage: 450 MG, QD
     Route: 048

REACTIONS (1)
  - Hypertension [Recovered/Resolved]
